FAERS Safety Report 6060837-2 (Version None)
Quarter: 2009Q1

REPORT INFORMATION
  Report Type: 
  Country: None (occurrence: None)
  Receive Date: 20090202
  Receipt Date: 20090129
  Transmission Date: 20090719
  Serious: Yes (Death)
  Sender: FDA-Public Use
  Company Number: PHHY2009CL03199

PATIENT
  Age: 70 Year
  Sex: Male

DRUGS (2)
  1. EXFORGE [Suspect]
     Indication: HYPERTENSION
     Dosage: 1 DF(160/5 MG), QD
     Dates: start: 20081101
  2. ATENOLOL [Concomitant]

REACTIONS (1)
  - CEREBRAL HAEMORRHAGE [None]
